FAERS Safety Report 13968571 (Version 1)
Quarter: 2017Q3

REPORT INFORMATION
  Report Type: Spontaneous
  Country: US (occurrence: US)
  Receive Date: 20170914
  Receipt Date: 20170914
  Transmission Date: 20171128
  Serious: Yes (Other)
  Sender: FDA-Public Use
  Company Number: US-ASTELLAS-2017US027225

PATIENT
  Age: 76 Year
  Sex: Male

DRUGS (1)
  1. XTANDI [Suspect]
     Active Substance: ENZALUTAMIDE
     Indication: PROSTATE CANCER
     Route: 048
     Dates: start: 20170422, end: 20170605

REACTIONS (11)
  - Posterior reversible encephalopathy syndrome [Recovering/Resolving]
  - Balance disorder [Recovering/Resolving]
  - Mental impairment [Recovering/Resolving]
  - Fatigue [Recovering/Resolving]
  - Treatment noncompliance [Unknown]
  - Muscular weakness [Unknown]
  - Dizziness [Unknown]
  - Visual impairment [Recovering/Resolving]
  - Depression [Recovering/Resolving]
  - Decreased appetite [Recovering/Resolving]
  - Asthenia [Recovering/Resolving]

NARRATIVE: CASE EVENT DATE: 20170422
